FAERS Safety Report 7122276-2 (Version None)
Quarter: 2010Q4

REPORT INFORMATION
  Report Type: 
  Country: None (occurrence: None)
  Receive Date: 20101122
  Receipt Date: 20101122
  Transmission Date: 20110411
  Serious: Yes (Life-Threatening, Other)
  Sender: FDA-Public Use
  Company Number: None

PATIENT
  Age: 31 Year
  Sex: Male
  Weight: 131.8 kg

DRUGS (2)
  1. ATENOLOL [Suspect]
     Indication: CHANGE OF BOWEL HABIT
     Dosage: 25MG OK TENORMIN  DAILY HS PO  APROX 1 1/2 WK
     Route: 048
     Dates: end: 20080429
  2. FAMOTIDINE [Suspect]
     Indication: ABDOMINAL PAIN
     Dosage: PROTONIX 30MG OK LANSOPRAZOLE DAILY AM PO
     Route: 048
     Dates: start: 20100221

REACTIONS (7)
  - ANKLE FRACTURE [None]
  - FALL [None]
  - LOSS OF CONSCIOUSNESS [None]
  - LOWER LIMB FRACTURE [None]
  - PRESYNCOPE [None]
  - PRODUCT SUBSTITUTION ISSUE [None]
  - URTICARIA [None]
